FAERS Safety Report 10449447 (Version 1)
Quarter: 2014Q3

REPORT INFORMATION
  Report Type: Spontaneous
  Country: US (occurrence: None)
  Receive Date: 20140911
  Receipt Date: 20140911
  Transmission Date: 20150326
  Serious: No
  Sender: FDA-Public Use
  Company Number: None

PATIENT
  Age: 84 Year
  Sex: Female
  Weight: 64.86 kg

DRUGS (11)
  1. VESICARE [Suspect]
     Active Substance: SOLIFENACIN SUCCINATE
     Indication: HYPERTONIC BLADDER
     Dosage: 1 DAILY  MOUTH
     Route: 048
     Dates: start: 20140410, end: 20140601
  2. LIPITOR [Concomitant]
     Active Substance: ATORVASTATIN CALCIUM
  3. ZOLOFT [Concomitant]
     Active Substance: SERTRALINE HYDROCHLORIDE
  4. RESTORIL [Concomitant]
     Active Substance: TEMAZEPAM
  5. HYDROCODONE [Concomitant]
     Active Substance: HYDROCODONE
  6. TRIAMCINOLONE [Concomitant]
     Active Substance: TRIAMCINOLONE
  7. LEVOTHYROXINE [Concomitant]
     Active Substance: LEVOTHYROXINE
  8. PLAVIX [Concomitant]
     Active Substance: CLOPIDOGREL BISULFATE
  9. ENSURE [Concomitant]
     Active Substance: AMINO ACIDS\DEXTROSE\ELECTROLYTES NOS\SOYBEAN OIL\VITAMINS
  10. ALPRAZOLAM. [Concomitant]
     Active Substance: ALPRAZOLAM
  11. AMLODIPINE [Concomitant]
     Active Substance: AMLODIPINE BESYLATE

REACTIONS (6)
  - Pruritus [None]
  - Rash [None]
  - Abdominal pain upper [None]
  - Constipation [None]
  - Fatigue [None]
  - Blister [None]

NARRATIVE: CASE EVENT DATE: 201404
